FAERS Safety Report 9373923 (Version 2)
Quarter: 2014Q1

REPORT INFORMATION
  Report Type: Spontaneous
  Country: US (occurrence: US)
  Receive Date: 20130628
  Receipt Date: 20140110
  Transmission Date: 20141002
  Serious: Yes (Hospitalization, Other)
  Sender: FDA-Public Use
  Company Number: US-ALEXION-A201301496

PATIENT
  Sex: 0

DRUGS (2)
  1. SOLIRIS 300MG [Suspect]
     Indication: HAEMOLYTIC URAEMIC SYNDROME
     Dosage: UNK
     Route: 042
     Dates: start: 201306
  2. SOLIRIS 300MG [Suspect]
     Dosage: UNK

REACTIONS (4)
  - Pancreatic carcinoma [Unknown]
  - Renal failure acute [Unknown]
  - Diarrhoea [Unknown]
  - Dementia [Unknown]
